FAERS Safety Report 12366980 (Version 4)
Quarter: 2017Q2

REPORT INFORMATION
  Report Type: Spontaneous
  Country: US (occurrence: US)
  Receive Date: 20160513
  Receipt Date: 20170626
  Transmission Date: 20170830
  Serious: Yes (Hospitalization, Other)
  Sender: FDA-Public Use
  Company Number: US-PFIZER INC-2016225840

PATIENT
  Age: 66 Year
  Sex: Female
  Weight: 86.17 kg

DRUGS (4)
  1. LYRICA [Suspect]
     Active Substance: PREGABALIN
     Dosage: 225 MG, DAILY (75 MG 3 CAPSULES A DAY)
     Dates: end: 20170609
  2. LYRICA [Suspect]
     Active Substance: PREGABALIN
     Indication: FIBROMYALGIA
     Dosage: 375 MG, UNK
     Route: 048
     Dates: end: 20160409
  3. LYRICA [Suspect]
     Active Substance: PREGABALIN
     Dosage: 225 MG, DAILY (75 MG, TAKE 3 CAPSULES DAILY)
     Route: 048
     Dates: start: 20160908
  4. LYRICA [Suspect]
     Active Substance: PREGABALIN
     Dosage: UNK, DAILY ((3X75), 1-DAY)

REACTIONS (12)
  - Discomfort [Recovered/Resolved]
  - Influenza like illness [Unknown]
  - Withdrawal syndrome [Recovered/Resolved]
  - Pain of skin [Recovered/Resolved]
  - Depression [Recovered/Resolved]
  - Pain [Recovered/Resolved]
  - Skin tightness [Recovered/Resolved]
  - Insomnia [Recovered/Resolved]
  - Headache [Unknown]
  - Pain in extremity [Unknown]
  - Abdominal pain upper [Unknown]
  - Hot flush [Unknown]
